FAERS Safety Report 10014740 (Version 1)
Quarter: 2014Q1

REPORT INFORMATION
  Report Type: Spontaneous
  Country: GB (occurrence: GB)
  Receive Date: 20140317
  Receipt Date: 20140317
  Transmission Date: 20141002
  Serious: Yes (Other)
  Sender: FDA-Public Use
  Company Number: GB-TEVA-466528ISR

PATIENT
  Age: 25 Year
  Sex: Female
  Weight: 79 kg

DRUGS (6)
  1. SERTRALINE [Suspect]
     Indication: DEPRESSION
     Dosage: 50 MILLIGRAM DAILY;
     Dates: start: 20130321
  2. VENLAFAXINE [Suspect]
     Indication: DEPRESSION
     Dosage: PROLONGED-RELEASE CAPSULE
  3. VENLAFAXINE [Suspect]
     Indication: DEPRESSION
     Dosage: PROLONGED-RELEASE CAPSULE
  4. VENLAFAXINE [Suspect]
     Indication: DEPRESSION
     Dosage: PROLONGED-RELEASE CAPSULE
     Dates: start: 20120515
  5. VENLAFAXINE [Suspect]
     Indication: DEPRESSION
     Dosage: PROLONGED-RELEASE CAPSULE
     Dates: end: 20130405
  6. VENLAFAXINE [Suspect]
     Indication: DEPRESSION
     Dosage: PROLONGED-RELEASE CAPSULE

REACTIONS (3)
  - Pre-eclampsia [Unknown]
  - Drug withdrawal syndrome [Unknown]
  - Normal newborn [Unknown]
